FAERS Safety Report 5203490-X (Version None)
Quarter: 2007Q1

REPORT INFORMATION
  Report Type: 
  Country: None (occurrence: None)
  Receive Date: 20070110
  Receipt Date: 20070104
  Transmission Date: 20070707
  Serious: Yes (Other)
  Sender: FDA-Public Use
  Company Number: NL-AVENTIS-200710110GDDC

PATIENT

DRUGS (3)
  1. GLYBURIDE [Suspect]
     Indication: BLOOD GLUCOSE
     Route: 048
  2. INSULIN [Concomitant]
  3. DEXTROSE [Concomitant]

REACTIONS (2)
  - BLOOD GLUCAGON ABNORMAL [None]
  - BLOOD GROWTH HORMONE ABNORMAL [None]
